FAERS Safety Report 9095700 (Version 1)
Quarter: 2013Q1

REPORT INFORMATION
  Report Type: Spontaneous
  Country: DE (occurrence: DE)
  Receive Date: 20130220
  Receipt Date: 20130220
  Transmission Date: 20140127
  Serious: Yes (Hospitalization)
  Sender: FDA-Public Use
  Company Number: DE-AMGEN-DEUSP2013010950

PATIENT
  Age: 76 Year
  Sex: Female
  Weight: 75 kg

DRUGS (2)
  1. ENBREL [Suspect]
     Indication: RHEUMATOID ARTHRITIS
     Dosage: 25 MG, EVERY 5 DAYS
     Route: 058
     Dates: start: 200906
  2. DICLOFENAC [Concomitant]
     Dosage: UNK
     Dates: start: 1992

REACTIONS (2)
  - Diverticulum intestinal [Recovered/Resolved]
  - Haematochezia [Recovered/Resolved]
